FAERS Safety Report 16546858 (Version 3)
Quarter: 2020Q2

REPORT INFORMATION
  Report Type: Spontaneous
  Country: HU (occurrence: HU)
  Receive Date: 20190709
  Receipt Date: 20200422
  Transmission Date: 20200713
  Serious: Yes (Life-Threatening, Hospitalization)
  Sender: FDA-Public Use
  Company Number: HU-PFIZER INC-2019282311

PATIENT
  Age: 38 Year
  Sex: Male

DRUGS (10)
  1. CYTARABINE. [Suspect]
     Active Substance: CYTARABINE
     Indication: ACUTE MYELOID LEUKAEMIA
     Dosage: UNK, ^7+3^ PROTOCOL
  2. DAUNORUBICIN HCL [Suspect]
     Active Substance: DAUNORUBICIN HYDROCHLORIDE
     Indication: ACUTE MYELOID LEUKAEMIA
     Dosage: UNK, ^7+3^ PROTOCOL
  3. IDARUBICIN HCL [Suspect]
     Active Substance: IDARUBICIN HYDROCHLORIDE
     Indication: ACUTE MYELOID LEUKAEMIA
     Dosage: UNK, FLAG-IDA
  4. CYTARABINE. [Suspect]
     Active Substance: CYTARABINE
     Dosage: UNK, MEC
  5. CYTARABINE. [Suspect]
     Active Substance: CYTARABINE
     Dosage: UNK, HDA
  6. ETOPOSIDE. [Suspect]
     Active Substance: ETOPOSIDE
     Indication: ACUTE MYELOID LEUKAEMIA
  7. FLUDARABINE [Suspect]
     Active Substance: FLUDARABINE PHOSPHATE
     Indication: ACUTE MYELOID LEUKAEMIA
     Dosage: UNK, FLAG-IDA
  8. GEMTUZUMAB OZOGAMICIN [Suspect]
     Active Substance: GEMTUZUMAB OZOGAMICIN
     Indication: ACUTE MYELOID LEUKAEMIA
  9. CYTARABINE. [Suspect]
     Active Substance: CYTARABINE
     Dosage: UNK, FLAG-IDA
  10. MITOXANTRONE [Suspect]
     Active Substance: MITOXANTRONE HYDROCHLORIDE
     Indication: ACUTE MYELOID LEUKAEMIA

REACTIONS (6)
  - Aspergillus infection [Recovering/Resolving]
  - Fungal infection [Recovered/Resolved]
  - Pyrexia [Recovered/Resolved]
  - Febrile neutropenia [Recovered/Resolved]
  - Bone marrow failure [Recovered/Resolved]
  - Neoplasm progression [Recovering/Resolving]
